FAERS Safety Report 6741439-9 (Version None)
Quarter: 2010Q2

REPORT INFORMATION
  Report Type: 
  Country: None (occurrence: None)
  Receive Date: 20100526
  Receipt Date: 20100422
  Transmission Date: 20101027
  Serious: No
  Sender: FDA-Public Use
  Company Number: US-BAYER-201022040NA

PATIENT
  Age: 48 Year
  Sex: Female
  Weight: 111 kg

DRUGS (7)
  1. ULTRAVIST 300 [Suspect]
     Indication: COMPUTERISED TOMOGRAM THORAX
     Dosage: TOTAL DAILY DOSE: 150 ML
     Route: 042
     Dates: start: 20100422, end: 20100422
  2. BENADRYL [Concomitant]
  3. READI-CAT [Concomitant]
     Route: 048
     Dates: start: 20100422, end: 20100422
  4. PREDNISONE [Concomitant]
     Dosage: DOSE: 12 HRS BEFORE SCAN
     Route: 048
  5. HUMALOG [Concomitant]
  6. EFFEXOR [Concomitant]
  7. LANTUS [Concomitant]

REACTIONS (4)
  - EAR PRURITUS [None]
  - NASAL CONGESTION [None]
  - PRURITUS [None]
  - THROAT IRRITATION [None]
